FAERS Safety Report 11492836 (Version 1)
Quarter: 2015Q3

REPORT INFORMATION
  Report Type: Report from Study
  Country: VE (occurrence: VE)
  Receive Date: 20150911
  Receipt Date: 20150911
  Transmission Date: 20151125
  Serious: Yes (Death)
  Sender: FDA-Public Use
  Company Number: VE-ROCHE-1632888

PATIENT
  Age: 93 Year
  Sex: Female

DRUGS (1)
  1. MABTHERA [Suspect]
     Active Substance: RITUXIMAB
     Indication: NON-HODGKIN^S LYMPHOMA
     Dosage: 1 AMPOULE
     Route: 042
     Dates: start: 20120824

REACTIONS (2)
  - Influenza [Fatal]
  - Immunosuppression [Fatal]

NARRATIVE: CASE EVENT DATE: 20140809
